FAERS Safety Report 22347848 (Version 2)
Quarter: 2023Q2

REPORT INFORMATION
  Report Type: Spontaneous
  Country: FR (occurrence: FR)
  Receive Date: 20230522
  Receipt Date: 20230530
  Transmission Date: 20230721
  Serious: Yes (Hospitalization, Disabling)
  Sender: FDA-Public Use
  Company Number: None

PATIENT
  Age: 59 Year
  Sex: Male
  Weight: 63.4 kg

DRUGS (22)
  1. FUROSEMIDE [Suspect]
     Active Substance: FUROSEMIDE
     Indication: Polyuria
     Route: 065
     Dates: start: 20230405
  2. DAPTOMYCIN [Suspect]
     Active Substance: DAPTOMYCIN
     Indication: Antibiotic prophylaxis
     Route: 065
     Dates: start: 20230405, end: 20230417
  3. CYCLOPHOSPHAMIDE [Suspect]
     Active Substance: CYCLOPHOSPHAMIDE
     Indication: Bone marrow conditioning regimen
     Route: 065
     Dates: start: 20230401, end: 20230402
  4. CYCLOSPORINE [Suspect]
     Active Substance: CYCLOSPORINE
     Indication: Prophylaxis against transplant rejection
     Route: 065
     Dates: start: 20230329, end: 20230405
  5. CEFEPIME [Suspect]
     Active Substance: CEFEPIME HYDROCHLORIDE
     Indication: Opportunistic infection prophylaxis
     Route: 065
     Dates: start: 20230330, end: 20230405
  6. CEFEPIME [Suspect]
     Active Substance: CEFEPIME HYDROCHLORIDE
     Route: 065
     Dates: start: 20230420, end: 20230503
  7. MYCOPHENOLATE MOFETIL [Suspect]
     Active Substance: MYCOPHENOLATE MOFETIL
     Indication: Prophylaxis against transplant rejection
     Route: 065
     Dates: start: 20230420, end: 20230503
  8. MYCOPHENOLATE MOFETIL [Suspect]
     Active Substance: MYCOPHENOLATE MOFETIL
     Route: 065
     Dates: start: 20230329, end: 20230403
  9. AMIKACIN [Suspect]
     Active Substance: AMIKACIN
     Indication: Antibiotic prophylaxis
     Route: 065
     Dates: start: 20230405, end: 20230405
  10. VALACYCLOVIR HYDROCHLORIDE [Suspect]
     Active Substance: VALACYCLOVIR HYDROCHLORIDE
     Indication: Opportunistic infection prophylaxis
     Route: 065
     Dates: start: 20230322, end: 20230404
  11. VALACYCLOVIR HYDROCHLORIDE [Suspect]
     Active Substance: VALACYCLOVIR HYDROCHLORIDE
     Route: 065
     Dates: start: 20230421, end: 20230503
  12. DEFITELIO [Suspect]
     Active Substance: DEFIBROTIDE SODIUM
     Indication: Venoocclusive liver disease
     Dosage: 80 MG/ML CONCENTRATE FOR SOLUTION FOR INFUSION
     Route: 042
     Dates: start: 20230405, end: 20230503
  13. BACTRIM [Suspect]
     Active Substance: SULFAMETHOXAZOLE\TRIMETHOPRIM
     Indication: Opportunistic infection prophylaxis
     Dosage: 1 TABLET MONDAY-WEDNESDAY-FRIDAY
     Route: 065
     Dates: start: 20230421, end: 20230503
  14. BACTRIM [Suspect]
     Active Substance: SULFAMETHOXAZOLE\TRIMETHOPRIM
     Dosage: 1 TABLET MONDAY-WEDNESDAY-FRIDAY
     Route: 065
     Dates: start: 20230322, end: 20230404
  15. METHYLPREDNISOLONE [Concomitant]
     Active Substance: METHYLPREDNISOLONE
     Indication: Prophylaxis against transplant rejection
     Dates: start: 20230405
  16. FLUDARABINE PHOSPHATE [Concomitant]
     Active Substance: FLUDARABINE PHOSPHATE
     Indication: Bone marrow conditioning regimen
     Route: 065
     Dates: start: 20230325, end: 20230327
  17. RUXOLITINIB [Concomitant]
     Active Substance: RUXOLITINIB
     Indication: Myelofibrosis
     Dates: start: 20230322, end: 20230328
  18. PANTOPRAZOLE [Concomitant]
     Active Substance: PANTOPRAZOLE
     Indication: Prophylaxis against gastrointestinal ulcer
     Route: 065
     Dates: start: 20230421
  19. ATORVASTATIN [Concomitant]
     Active Substance: ATORVASTATIN
     Indication: Dyslipidaemia
     Dates: end: 20230404
  20. MELPHALAN [Concomitant]
     Active Substance: MELPHALAN
     Indication: Bone marrow conditioning regimen
     Dates: start: 20230327, end: 20230327
  21. POSACONAZOLE [Concomitant]
     Active Substance: POSACONAZOLE
     Indication: Opportunistic infection prophylaxis
     Dates: start: 20230412
  22. PIPERACILLIN SODIUM\TAZOBACTAM SODIUM [Concomitant]
     Active Substance: PIPERACILLIN SODIUM\TAZOBACTAM SODIUM
     Indication: Antibiotic prophylaxis
     Dates: start: 20230406, end: 20230417

REACTIONS (1)
  - Acute kidney injury [Not Recovered/Not Resolved]

NARRATIVE: CASE EVENT DATE: 20230405
